FAERS Safety Report 4301894-0 (Version None)
Quarter: 2004Q1

REPORT INFORMATION
  Report Type: 
  Country: None (occurrence: None)
  Receive Date: 20040223
  Receipt Date: 20040120
  Transmission Date: 20041129
  Serious: Yes (Other)
  Sender: FDA-Public Use
  Company Number: WAES 0401USA01465

PATIENT
  Age: 74 Year
  Sex: Female

DRUGS (2)
  1. HYZAAR [Suspect]
     Indication: HYPERTENSION
     Route: 048
  2. HYZAAR [Suspect]
     Route: 048

REACTIONS (2)
  - CARDIAC DISORDER [None]
  - NASAL CONGESTION [None]
